FAERS Safety Report 13869774 (Version 2)
Quarter: 2017Q3

REPORT INFORMATION
  Report Type: Spontaneous
  Country: US (occurrence: US)
  Receive Date: 20170815
  Receipt Date: 20170816
  Transmission Date: 20171127
  Serious: No
  Sender: FDA-Public Use
  Company Number: US-PFIZER INC-2017349254

PATIENT
  Age: 10 Year
  Sex: Female
  Weight: 28 kg

DRUGS (4)
  1. GENOTROPIN [Suspect]
     Active Substance: SOMATROPIN
     Dosage: 1.2MG BY INJECTION EVERY NIGHT
     Dates: end: 20170710
  2. LEVOTHYROXINE SODIUM. [Suspect]
     Active Substance: LEVOTHYROXINE SODIUM
     Indication: THYROID DISORDER
     Dosage: 0.5MG ONE TABLET EVERY MORNING
  3. GENOTROPIN [Suspect]
     Active Substance: SOMATROPIN
     Indication: THYROID DISORDER
     Dosage: 0.8 UNK, UNK
  4. GENOTROPIN [Suspect]
     Active Substance: SOMATROPIN
     Indication: BLOOD GROWTH HORMONE ABNORMAL
     Dosage: 1.0 UNK, UNK

REACTIONS (6)
  - Therapeutic response unexpected [Unknown]
  - Drug prescribing error [Unknown]
  - Pre-existing condition improved [Unknown]
  - Weight increased [Unknown]
  - Drug dose omission [Unknown]
  - Energy increased [Unknown]
